FAERS Safety Report 10564760 (Version 4)
Quarter: 2021Q1

REPORT INFORMATION
  Report Type: Spontaneous
  Country: ES (occurrence: ES)
  Receive Date: 20141105
  Receipt Date: 20210128
  Transmission Date: 20210419
  Serious: Yes (Hospitalization, Other)
  Sender: FDA-Public Use
  Company Number: ES-AUROBINDO-AUR-APL-2014-09049

PATIENT
  Age: 79 Year
  Sex: Female

DRUGS (4)
  1. ALENDRONIC ACID TABLETS [Suspect]
     Active Substance: ALENDRONIC ACID
     Indication: OSTEOPOROSIS POSTMENOPAUSAL
     Dosage: 10 MILLIGRAM, DAILY
     Route: 048
  2. CALCIUM [Concomitant]
     Active Substance: CALCIUM
     Indication: OSTEOPOROSIS POSTMENOPAUSAL
     Dosage: UNK, (FOR AT LEAST 8 YEARS)
     Route: 065
  3. VITAMIN D [Concomitant]
     Active Substance: VITAMIN D NOS
     Indication: OSTEOPOROSIS POSTMENOPAUSAL
     Dosage: UNK, (FOR AT LEAST 8 YEARS)
     Route: 065
  4. ALENDRONIC ACID TABLETS [Suspect]
     Active Substance: ALENDRONIC ACID
     Dosage: 70 MILLIGRAM, EVERY WEEK, (FOR AT LEAST 8 YEARS)
     Route: 048

REACTIONS (3)
  - Fracture delayed union [Recovering/Resolving]
  - Femur fracture [Recovered/Resolved]
  - Intramedullary rod insertion [Unknown]
